FAERS Safety Report 8530420-5 (Version None)
Quarter: 2012Q3

REPORT INFORMATION
  Report Type: 
  Country: None (occurrence: None)
  Receive Date: 20120723
  Receipt Date: 20120714
  Transmission Date: 20120928
  Serious: Yes (Hospitalization, Other)
  Sender: FDA-Public Use
  Company Number: US-ABBOTT-12P-163-0941572-00

PATIENT
  Sex: Male
  Weight: 74.456 kg

DRUGS (4)
  1. HUMIRA [Suspect]
     Indication: CROHN'S DISEASE
     Route: 058
     Dates: start: 20100801, end: 20110701
  2. HUMIRA [Suspect]
  3. AZASAN [Concomitant]
     Indication: CROHN'S DISEASE
     Dates: start: 20120530
  4. TRAMADOL HYDROCHLORIDE [Concomitant]
     Indication: PAIN

REACTIONS (8)
  - ENTEROCUTANEOUS FISTULA [None]
  - POSTOPERATIVE WOUND COMPLICATION [None]
  - FISTULA DISCHARGE [None]
  - MUSCULOSKELETAL PAIN [None]
  - JOINT STIFFNESS [None]
  - CROHN'S DISEASE [None]
  - GASTROINTESTINAL INFECTION [None]
  - ARTHRALGIA [None]
